FAERS Safety Report 15074726 (Version 1)
Quarter: 2018Q2

REPORT INFORMATION
  Report Type: Spontaneous
  Country: US (occurrence: US)
  Receive Date: 20180627
  Receipt Date: 20180627
  Transmission Date: 20180711
  Serious: Yes (Other)
  Sender: FDA-Public Use
  Company Number: US-SAOL THERAPEUTICS-2017SAO01223

PATIENT
  Sex: Male

DRUGS (3)
  1. BACLOFEN. [Suspect]
     Active Substance: BACLOFEN
     Indication: POST LAMINECTOMY SYNDROME
  2. BACLOFEN. [Suspect]
     Active Substance: BACLOFEN
     Indication: PAIN
     Dosage: 120.07 ?G, \DAY
     Route: 037
  3. FENTANYL. [Suspect]
     Active Substance: FENTANYL
     Dosage: 2401.5 ?G, \DAY
     Route: 037

REACTIONS (6)
  - Feeling cold [Unknown]
  - Myalgia [Unknown]
  - Off label use [Unknown]
  - Drug withdrawal syndrome [Unknown]
  - Device failure [Unknown]
  - Hyperhidrosis [Unknown]

NARRATIVE: CASE EVENT DATE: 20170718
